FAERS Safety Report 14186888 (Version 2)
Quarter: 2017Q4

REPORT INFORMATION
  Report Type: Spontaneous
  Country: FR (occurrence: FR)
  Receive Date: 20171114
  Receipt Date: 20171116
  Transmission Date: 20180321
  Serious: Yes (Other)
  Sender: FDA-Public Use
  Company Number: FR-MERCK KGAA-2033977

PATIENT
  Age: 68 Year
  Sex: Female

DRUGS (1)
  1. NOVOTHYROX [Suspect]
     Active Substance: LEVOTHYROXINE SODIUM
     Indication: HYPOTHYROIDISM
     Dates: start: 2017

REACTIONS (10)
  - Apathy [None]
  - Headache [None]
  - Feeling abnormal [None]
  - Feeling hot [None]
  - Malaise [None]
  - Hyperthyroidism [None]
  - Agitation [None]
  - Fatigue [None]
  - Feeling jittery [None]
  - Tremor [None]

NARRATIVE: CASE EVENT DATE: 2017
